FAERS Safety Report 18718176 (Version 1)
Quarter: 2021Q1

REPORT INFORMATION
  Report Type: Spontaneous
  Country: CA (occurrence: CA)
  Receive Date: 20210108
  Receipt Date: 20210108
  Transmission Date: 20210419
  Serious: Yes (Other)
  Sender: FDA-Public Use
  Company Number: CA-AMGEN-CANSP2021001223

PATIENT

DRUGS (4)
  1. XGEVA [Suspect]
     Active Substance: DENOSUMAB
     Indication: BONE GIANT CELL TUMOUR
     Dosage: 120 MILLIGRAM, Q4WK
     Route: 058
  2. XGEVA [Suspect]
     Active Substance: DENOSUMAB
     Dosage: ADDITIONAL LOADING DOSES ON DAYS 8 AND 15 OF THE FIRST CYCLE OF TREATMENTUNK
     Route: 058
  3. CALCIUM [Concomitant]
     Active Substance: CALCIUM
     Dosage: (}  500
  4. VITAMIN D [COLECALCIFEROL] [Concomitant]
     Active Substance: CHOLECALCIFEROL
     Dosage: (} 400

REACTIONS (9)
  - Bone giant cell tumour [Not Recovered/Not Resolved]
  - Arthritis infective [Unknown]
  - Metastases to lung [Unknown]
  - Adverse drug reaction [Unknown]
  - Lower limb fracture [Recovered/Resolved]
  - Osteosarcoma [Unknown]
  - Pain [Unknown]
  - Hypocalcaemia [Unknown]
  - Arthritis [Unknown]
